FAERS Safety Report 5537092-2 (Version None)
Quarter: 2007Q4

REPORT INFORMATION
  Report Type: 
  Country: None (occurrence: None)
  Receive Date: 20071204
  Receipt Date: 20070403
  Transmission Date: 20080405
  Serious: Yes (Hospitalization)
  Sender: FDA-Public Use
  Company Number: 001#2#2007-00255

PATIENT
  Age: 66 Year
  Sex: Male

DRUGS (2)
  1. NEUPRO [Suspect]
     Indication: PARKINSON'S DISEASE
     Dosage: 6 MG/24H (6 MG/24H 1 IN 1 DAY (S)) TRANSDERMAL
     Route: 062
     Dates: start: 20061001
  2. ANTI-PARKINSON AGENTS [Concomitant]

REACTIONS (10)
  - CONFUSIONAL STATE [None]
  - DIPLOPIA [None]
  - DISORIENTATION [None]
  - FATIGUE [None]
  - IRRITABILITY [None]
  - MALAISE [None]
  - MIDDLE INSOMNIA [None]
  - MUSCLE DISORDER [None]
  - SKIN IRRITATION [None]
  - SLEEP ATTACKS [None]
